FAERS Safety Report 9815610 (Version 1)
Quarter: 2014Q1

REPORT INFORMATION
  Report Type: Spontaneous
  Country: JP (occurrence: None)
  Receive Date: 20140110
  Receipt Date: 20140110
  Transmission Date: 20141002
  Serious: Yes (Hospitalization, Other)
  Sender: FDA-Public Use
  Company Number: 2013/223

PATIENT
  Age: 77 Year
  Sex: Female

DRUGS (5)
  1. MEMANTINE [Suspect]
     Indication: DEMENTIA
     Dosage: 5 MG, UNK + UNK
  2. DONEPEZIL [Suspect]
     Indication: DEMENTIA
     Dosage: 10 MG, UNK + UNK
  3. TELMISARTAN (NO PREF NAME) 40 MG [Concomitant]
  4. NIFEDIPINE (NO PREF. NAME) 40 MG [Concomitant]
  5. PRAVASTATIN SODIUM (NO PREF NAME) 5 MG [Concomitant]

REACTIONS (2)
  - Electrocardiogram PR prolongation [None]
  - Bradycardia [None]
